FAERS Safety Report 17604359 (Version 6)
Quarter: 2020Q2

REPORT INFORMATION
  Report Type: Spontaneous
  Country: US (occurrence: US)
  Receive Date: 20200331
  Receipt Date: 20200522
  Transmission Date: 20200713
  Serious: Yes (Other)
  Sender: FDA-Public Use
  Company Number: US-PFIZER INC-2020131721

PATIENT
  Age: 70 Year
  Sex: Female

DRUGS (1)
  1. IBRANCE [Suspect]
     Active Substance: PALBOCICLIB
     Indication: ANAEMIA
     Dosage: 75 MG, UNK

REACTIONS (3)
  - Product use in unapproved indication [Unknown]
  - White blood cell count decreased [Unknown]
  - Off label use [Unknown]
